FAERS Safety Report 19685491 (Version 1)
Quarter: 2021Q3

REPORT INFORMATION
  Report Type: Spontaneous
  Country: US (occurrence: US)
  Receive Date: 20210811
  Receipt Date: 20210811
  Transmission Date: 20211014
  Serious: No
  Sender: FDA-Public Use
  Company Number: None

PATIENT
  Age: 70 Year
  Sex: Female

DRUGS (1)
  1. COSENTYX [Suspect]
     Active Substance: SECUKINUMAB
     Indication: PSORIASIS
     Dosage: INJECT 150MG (1 PEN) SUBCUTANEOUSLY AT DAY 28 (DOSE 5) ROTATING INJECTION SITES   AS DIRECTED
     Route: 058
     Dates: start: 202105

REACTIONS (2)
  - Appendicectomy [None]
  - Illness [None]
